FAERS Safety Report 9399079 (Version 2)
Quarter: 2013Q4

REPORT INFORMATION
  Report Type: Spontaneous
  Country: JP (occurrence: JP)
  Receive Date: 20130715
  Receipt Date: 20131014
  Transmission Date: 20140711
  Serious: Yes (Death, Hospitalization, Other)
  Sender: FDA-Public Use
  Company Number: JP-ROCHE-1247625

PATIENT
  Age: 56 Year
  Sex: Male

DRUGS (16)
  1. AVASTIN [Suspect]
     Indication: RECTAL CANCER METASTATIC
     Dosage: DOSAGE IS UNCERTAIN
     Route: 041
     Dates: start: 2007
  2. AVASTIN [Suspect]
     Dosage: DOSAGE IS UNCERTAIN
     Route: 041
     Dates: end: 2008
  3. AVASTIN [Suspect]
     Dosage: DOSAGE IS UNCERTAIN
     Route: 041
     Dates: start: 2008, end: 2009
  4. ELPLAT [Suspect]
     Indication: RECTAL CANCER METASTATIC
     Route: 041
  5. IRINOTECAN HYDROCHLORIDE [Concomitant]
     Indication: RECTAL CANCER METASTATIC
     Route: 041
     Dates: start: 20071102
  6. IRINOTECAN HYDROCHLORIDE [Concomitant]
     Dosage: DOSAGE UNCERTAIN
     Route: 041
     Dates: end: 2008
  7. IRINOTECAN HYDROCHLORIDE [Concomitant]
     Dosage: DOSAGE UNCERTAIN
     Route: 041
     Dates: start: 2008, end: 2009
  8. LEVOFOLINATE [Concomitant]
     Indication: RECTAL CANCER METASTATIC
     Dosage: DOSAGE IS UNCERTAIN
     Route: 041
     Dates: start: 20071102
  9. LEVOFOLINATE [Concomitant]
     Dosage: DOSAGE IS UNCERTAIN
     Route: 041
     Dates: end: 2008
  10. LEVOFOLINATE [Concomitant]
     Dosage: DOSAGE IS UNCERTAIN
     Route: 041
     Dates: start: 2008, end: 2009
  11. 5-FU [Concomitant]
     Indication: RECTAL CANCER METASTATIC
     Dosage: DOSAGE IS UNCERTAIN
     Route: 040
     Dates: start: 20071102
  12. 5-FU [Concomitant]
     Dosage: DOSAGE IS UNCERTAIN
     Route: 041
     Dates: start: 20071102
  13. 5-FU [Concomitant]
     Dosage: DOSAGE IS UNCERTAIN
     Route: 040
     Dates: end: 2008
  14. 5-FU [Concomitant]
     Dosage: DOSAGE IS UNCERTAIN
     Route: 041
     Dates: end: 2008
  15. 5-FU [Concomitant]
     Dosage: DOSAGE IS UNCERTAIN
     Route: 040
     Dates: start: 2008, end: 2009
  16. 5-FU [Concomitant]
     Dosage: DOSAGE IS UNCERTAIN
     Route: 041
     Dates: start: 2008, end: 2009

REACTIONS (2)
  - Mucosal haemorrhage [Recovered/Resolved]
  - Rectal cancer [Fatal]
